FAERS Safety Report 6719850-1 (Version None)
Quarter: 2010Q2

REPORT INFORMATION
  Report Type: 
  Country: None (occurrence: None)
  Receive Date: 20100511
  Receipt Date: 20100429
  Transmission Date: 20101027
  Serious: Yes (Hospitalization, Other)
  Sender: FDA-Public Use
  Company Number: PHHY2010SI27825

PATIENT
  Age: 78 Year
  Sex: Male

DRUGS (7)
  1. RASILEZ [Suspect]
     Indication: HYPERTENSION
     Dosage: TABLET (300 MG)
     Dates: start: 20100311, end: 20100323
  2. TELMISARTAN [Concomitant]
     Dosage: UNK
  3. PREDUCTAL [Concomitant]
  4. CONCOR [Concomitant]
     Dosage: UNK
  5. TERTENSIF - SLOW RELEASE [Concomitant]
     Dosage: UNK
  6. LASIX [Concomitant]
  7. TULIP [Concomitant]
     Dosage: UNK

REACTIONS (1)
  - RENAL FAILURE CHRONIC [None]
